FAERS Safety Report 4368699-6 (Version None)
Quarter: 2004Q2

REPORT INFORMATION
  Report Type: 
  Country: None (occurrence: None)
  Receive Date: 20040602
  Receipt Date: 20040602
  Transmission Date: 20050107
  Serious: Yes (Hospitalization)
  Sender: FDA-Public Use
  Company Number: None

PATIENT
  Weight: 83 kg

DRUGS (3)
  1. FLUDARABINE PHOSPHATE [Suspect]
     Indication: ACUTE LYMPHOCYTIC LEUKAEMIA
     Dosage: 66 MG QD X 5 IV
     Route: 042
     Dates: start: 20040309, end: 20040313
  2. MELPHALAN [Suspect]
     Dosage: 308 MG QD X 1 IV
     Dates: start: 20040314
  3. CAMPATH [Concomitant]

REACTIONS (2)
  - DIARRHOEA [None]
  - NEUTROPENIA [None]
